FAERS Safety Report 23175570 (Version 2)
Quarter: 2024Q1

REPORT INFORMATION
  Report Type: Spontaneous
  Country: US (occurrence: US)
  Receive Date: 20231113
  Receipt Date: 20240109
  Transmission Date: 20240410
  Serious: Yes (Other)
  Sender: FDA-Public Use
  Company Number: US-JNJFOC-20231113195

PATIENT
  Age: 60 Year
  Sex: Male

DRUGS (32)
  1. ELMIRON [Suspect]
     Active Substance: PENTOSAN POLYSULFATE SODIUM
     Indication: Cystitis interstitial
     Dosage: VARYING DOSES OF 100 MG THRICE DAILY AND 100 MG, 1 CAPSULE OR 2 CAPSULE TWICE DAILY (200MG)
     Route: 048
     Dates: start: 2000, end: 2020
  2. FLUTICASONE PROPIONATE [Concomitant]
     Active Substance: FLUTICASONE PROPIONATE
     Indication: Hypersensitivity
     Dates: start: 20110304
  3. ACETAMINOPHEN\HYDROCODONE [Concomitant]
     Active Substance: ACETAMINOPHEN\HYDROCODONE
     Indication: Nephrolithiasis
     Dates: start: 20111130
  4. HYDROXYZINE HYDROCHLORIDE [Concomitant]
     Active Substance: HYDROXYZINE HYDROCHLORIDE
     Indication: Cystitis interstitial
     Dates: start: 20130101
  5. DESONIDE [Concomitant]
     Active Substance: DESONIDE
     Indication: Dry skin
     Dates: start: 20130121
  6. AMMONIUM LACTATE [Concomitant]
     Active Substance: AMMONIUM LACTATE
     Indication: Dry skin
     Dates: start: 20130121
  7. PROPRANOLOL [Concomitant]
     Active Substance: PROPRANOLOL HYDROCHLORIDE
     Indication: Migraine
     Dates: start: 20130605
  8. POTASSIUM CHLORIDE [Concomitant]
     Active Substance: POTASSIUM CHLORIDE
     Indication: Blood potassium decreased
     Dates: start: 20130717
  9. OXYBUTYNIN CHLORIDE [Concomitant]
     Active Substance: OXYBUTYNIN CHLORIDE
     Indication: Cystitis interstitial
  10. BACLOFEN [Concomitant]
     Active Substance: BACLOFEN
     Indication: Cystitis interstitial
     Dates: start: 20130819
  11. ALPRAZOLAM [Concomitant]
     Active Substance: ALPRAZOLAM
     Indication: Anxiety
     Dates: start: 20130826, end: 20210324
  12. HYDROCHLOROTHIAZIDE [Concomitant]
     Active Substance: HYDROCHLOROTHIAZIDE
     Indication: Hypertension
     Dates: start: 20130926, end: 20210621
  13. TAMSULOSIN HYDROCHLORIDE [Concomitant]
     Active Substance: TAMSULOSIN HYDROCHLORIDE
     Indication: Prostatomegaly
     Dates: start: 20130210
  14. TAMSULOSIN HYDROCHLORIDE [Concomitant]
     Active Substance: TAMSULOSIN HYDROCHLORIDE
     Dates: start: 20140210
  15. DICYCLOMINE HYDROCHLORIDE [Concomitant]
     Active Substance: DICYCLOMINE HYDROCHLORIDE
     Indication: Gastrointestinal pain
     Dates: start: 20140211
  16. DICYCLOMINE HYDROCHLORIDE [Concomitant]
     Active Substance: DICYCLOMINE HYDROCHLORIDE
     Indication: Bladder spasm
  17. DULOXETINE HYDROCHLORIDE [Concomitant]
     Active Substance: DULOXETINE HYDROCHLORIDE
     Indication: Cystitis interstitial
     Dates: start: 20130210
  18. OXYBUTYNIN [Concomitant]
     Active Substance: OXYBUTYNIN\OXYBUTYNIN CHLORIDE
     Indication: Cystitis interstitial
     Dates: start: 20130813
  19. GABAPENTIN [Concomitant]
     Active Substance: GABAPENTIN
     Indication: Cystitis interstitial
     Dates: start: 20180802
  20. SENNA S [Concomitant]
     Active Substance: DOCUSATE SODIUM\SENNA LEAF
     Indication: Constipation
     Dates: start: 2020
  21. OMEPRAZOLE [Concomitant]
     Active Substance: OMEPRAZOLE
     Indication: Gastrooesophageal reflux disease
     Dates: start: 2018
  22. OMEPRAZOLE [Concomitant]
     Active Substance: OMEPRAZOLE
     Indication: Hernia
  23. HYDROXYCHLOROQUINE [Concomitant]
     Active Substance: HYDROXYCHLOROQUINE
     Indication: Systemic lupus erythematosus
     Dates: start: 2020
  24. HYDROXYCHLOROQUINE [Concomitant]
     Active Substance: HYDROXYCHLOROQUINE
     Indication: Antinuclear antibody positive
  25. FINASTERIDE [Concomitant]
     Active Substance: FINASTERIDE
     Indication: Prostatomegaly
     Dates: start: 2018
  26. PILOCARPINE [Concomitant]
     Active Substance: PILOCARPINE
     Indication: Systemic lupus erythematosus
     Dates: start: 2020
  27. PILOCARPINE [Concomitant]
     Active Substance: PILOCARPINE
     Indication: Antinuclear antibody positive
  28. AMLODIPINE [Concomitant]
     Active Substance: AMLODIPINE BESYLATE
     Indication: Systemic lupus erythematosus
     Dates: start: 2020
  29. AMLODIPINE [Concomitant]
     Active Substance: AMLODIPINE BESYLATE
     Indication: Antinuclear antibody positive
  30. VITAMIN D3 [Concomitant]
     Active Substance: CHOLECALCIFEROL
     Indication: Nutritional supplementation
     Dates: start: 2016
  31. TOCOPHEROL [Concomitant]
     Active Substance: TOCOPHEROL
     Indication: Cystitis interstitial
     Dates: start: 2018
  32. COBALAMIN [Concomitant]
     Active Substance: COBALAMIN
     Indication: Systemic lupus erythematosus
     Dates: start: 2018

REACTIONS (3)
  - Age-related macular degeneration [Not Recovered/Not Resolved]
  - Pigmentary maculopathy [Not Recovered/Not Resolved]
  - Off label use [Unknown]

NARRATIVE: CASE EVENT DATE: 20200622
